FAERS Safety Report 15729672 (Version 3)
Quarter: 2019Q2

REPORT INFORMATION
  Report Type: Spontaneous
  Country: EG (occurrence: EG)
  Receive Date: 20181217
  Receipt Date: 20190604
  Transmission Date: 20190711
  Serious: Yes (Death, Other)
  Sender: FDA-Public Use
  Company Number: EG-SA-2018SA339086

PATIENT
  Age: 9 Year
  Sex: Male
  Weight: 24 kg

DRUGS (1)
  1. CEREZYME [Suspect]
     Active Substance: IMIGLUCERASE
     Indication: GAUCHER^S DISEASE TYPE III
     Dosage: DOSE: 60/KG/DOSE, QOW
     Route: 041
     Dates: start: 20111102, end: 20181129

REACTIONS (7)
  - Pulmonary haemorrhage [Unknown]
  - Acute respiratory distress syndrome [Fatal]
  - Hepatic encephalopathy [Unknown]
  - Varices oesophageal [Unknown]
  - Status epilepticus [Unknown]
  - Haematemesis [Unknown]
  - Hepatic cirrhosis [Unknown]

NARRATIVE: CASE EVENT DATE: 20181127
